FAERS Safety Report 6770821-9 (Version None)
Quarter: 2010Q2

REPORT INFORMATION
  Report Type: 
  Country: None (occurrence: None)
  Receive Date: 20100614
  Receipt Date: 20100614
  Transmission Date: 20101027
  Serious: Yes (Hospitalization)
  Sender: FDA-Public Use
  Company Number: None

PATIENT
  Age: 66 Year
  Sex: Male

DRUGS (2)
  1. CLINDAMYCIN [Suspect]
     Indication: CELLULITIS
     Dosage: 450 MG QID
     Dates: start: 20100507, end: 20100512
  2. BACITRACIN-NEOMYCIN-POLYMYXIN [Suspect]
     Indication: EYE PRURITUS
     Dates: start: 20100512, end: 20100512

REACTIONS (5)
  - ANGIOEDEMA [None]
  - EYE SWELLING [None]
  - PRURITUS [None]
  - RASH [None]
  - URTICARIA [None]
